FAERS Safety Report 5202126-1 (Version None)
Quarter: 2007Q1

REPORT INFORMATION
  Report Type: 
  Country: None (occurrence: None)
  Receive Date: 20070103
  Receipt Date: 20061221
  Transmission Date: 20070707
  Serious: Yes (Hospitalization)
  Sender: FDA-Public Use
  Company Number: 2006-152221-NL

PATIENT
  Age: 83 Year
  Sex: Male

DRUGS (3)
  1. MIRTAZAPINE [Suspect]
     Dosage: 15 MG ORAL
     Route: 048
  2. BENDROFLUAZIDE [Suspect]
     Dosage: 2.5 MG ORAL
     Route: 048
  3. FRUSEMIDE [Suspect]
     Dosage: 40 MG ORAL
     Route: 048

REACTIONS (1)
  - BLOOD SODIUM DECREASED [None]
